FAERS Safety Report 21542596 (Version 1)
Quarter: 2022Q4

REPORT INFORMATION
  Report Type: Spontaneous
  Country: US (occurrence: US)
  Receive Date: 20221102
  Receipt Date: 20221102
  Transmission Date: 20230113
  Serious: No
  Sender: FDA-Public Use
  Company Number: US-RVL_Pharmaceuticals-USA-POI1255202200328

PATIENT
  Age: 36 Year
  Sex: Female

DRUGS (2)
  1. UPNEEQ [Suspect]
     Active Substance: OXYMETAZOLINE HYDROCHLORIDE
     Indication: Eyelid ptosis
     Dosage: OU
     Route: 047
     Dates: start: 202112, end: 20220914
  2. TOLTERODINE [Concomitant]
     Active Substance: TOLTERODINE
     Indication: Pollakiuria
     Dates: start: 20220914, end: 20220914

REACTIONS (1)
  - Eyelid pain [Recovered/Resolved]

NARRATIVE: CASE EVENT DATE: 20210914
